FAERS Safety Report 7977855-7 (Version None)
Quarter: 2011Q4

REPORT INFORMATION
  Report Type: 
  Country: None (occurrence: None)
  Receive Date: 20111214
  Receipt Date: 20111206
  Transmission Date: 20120403
  Serious: No
  Sender: FDA-Public Use
  Company Number: US-AMGEN-USASP2011055174

PATIENT
  Age: 73 Year
  Sex: Female

DRUGS (1)
  1. ENBREL [Suspect]
     Indication: PSORIASIS
     Dosage: 50 MG, QWK
     Route: 058
     Dates: start: 20111006, end: 20111021

REACTIONS (8)
  - CHILLS [None]
  - SKIN EXFOLIATION [None]
  - OEDEMA PERIPHERAL [None]
  - ARTHRALGIA [None]
  - ALOPECIA [None]
  - PSORIASIS [None]
  - DRY SKIN [None]
  - SOMNOLENCE [None]
